FAERS Safety Report 5324011-7 (Version None)
Quarter: 2007Q2

REPORT INFORMATION
  Report Type: 
  Country: None (occurrence: None)
  Receive Date: 20070514
  Receipt Date: 20070509
  Transmission Date: 20071010
  Serious: Yes (Life-Threatening, Hospitalization)
  Sender: FDA-Public Use
  Company Number: US-BRISTOL-MYERS SQUIBB COMPANY-13604699

PATIENT
  Age: 53 Year
  Sex: Male

DRUGS (8)
  1. REYATAZ [Suspect]
     Indication: HIV INFECTION
     Route: 048
     Dates: start: 20051101, end: 20061030
  2. MEPRON [Concomitant]
     Route: 048
  3. VALCYTE [Concomitant]
  4. RITONAVIR [Concomitant]
  5. ZOLOFT [Concomitant]
  6. TRUVADA [Concomitant]
  7. DAPSONE [Concomitant]
  8. IMIPENEM [Concomitant]
     Indication: LUNG INFILTRATION
     Dates: end: 20061121

REACTIONS (5)
  - EOSINOPHILIA [None]
  - HEPATITIS CHOLESTATIC [None]
  - LIVER FUNCTION TEST ABNORMAL [None]
  - PYREXIA [None]
  - RASH [None]
